FAERS Safety Report 11595367 (Version 1)
Quarter: 2015Q4

REPORT INFORMATION
  Report Type: Report from Study
  Country: DE (occurrence: DE)
  Receive Date: 20151006
  Receipt Date: 20151006
  Transmission Date: 20160304
  Serious: Yes (Other)
  Sender: FDA-Public Use
  Company Number: DE-ROCHE-1642082

PATIENT
  Age: 55 Year
  Sex: Female
  Weight: 72 kg

DRUGS (5)
  1. PEG-INTERFERON ALFA 2A [Suspect]
     Active Substance: PEGINTERFERON ALFA-2A
     Indication: CHRONIC HEPATITIS C
     Route: 058
     Dates: start: 20130802
  2. PARACETAMOL [Concomitant]
     Active Substance: ACETAMINOPHEN
     Route: 065
     Dates: start: 20130802
  3. IBEROGAST [Concomitant]
     Active Substance: HERBALS
     Route: 065
     Dates: start: 20130821
  4. THYRONAJOD [Concomitant]
     Active Substance: LEVOTHYROXINE SODIUM\POTASSIUM IODIDE
     Route: 065
  5. BISOPROLOL RATIOPHARM [Concomitant]
     Active Substance: BISOPROLOL
     Route: 065
     Dates: start: 20061101

REACTIONS (1)
  - Leukopenia [Recovered/Resolved]

NARRATIVE: CASE EVENT DATE: 20130916
